FAERS Safety Report 16919070 (Version 1)
Quarter: 2019Q4

REPORT INFORMATION
  Report Type: Spontaneous
  Country: US (occurrence: US)
  Receive Date: 20191015
  Receipt Date: 20191015
  Transmission Date: 20200122
  Serious: Yes (Hospitalization)
  Sender: FDA-Public Use
  Company Number: US-ROCHE-2435341

PATIENT
  Age: 60 Year
  Sex: Female

DRUGS (2)
  1. ALECENSA [Suspect]
     Active Substance: ALECTINIB HYDROCHLORIDE
     Indication: BRONCHIAL NEOPLASM
     Route: 048
     Dates: start: 20171001, end: 20191001
  2. ALECENSA [Suspect]
     Active Substance: ALECTINIB HYDROCHLORIDE
     Indication: LUNG NEOPLASM

REACTIONS (3)
  - Anxiety [Unknown]
  - Bradycardia [Unknown]
  - Stress [Unknown]

NARRATIVE: CASE EVENT DATE: 20190707
